FAERS Safety Report 17909860 (Version 1)
Quarter: 2020Q3

REPORT INFORMATION
  Report Type: Spontaneous
  Country: DE (occurrence: DE)
  Receive Date: 20200617
  Receipt Date: 20200617
  Transmission Date: 20201104
  Serious: Yes (Hospitalization)
  Sender: FDA-Public Use
  Company Number: DE-ANIPHARMA-2020-DE-000124

PATIENT
  Age: 80 Year
  Sex: Male

DRUGS (8)
  1. PANTOPRAZOLE SODIUM. [Concomitant]
     Active Substance: PANTOPRAZOLE SODIUM
     Dosage: 40 MG QD
     Route: 065
  2. BISOPROLOL+HYDROCHLOROTHIAZIDE [Suspect]
     Active Substance: BISOPROLOL FUMARATE\HYDROCHLOROTHIAZIDE
     Dosage: 5/12.5 MILLIGRAM, EVERY DAY
     Route: 065
  3. AMLODIPIN [Concomitant]
     Active Substance: AMLODIPINE BESYLATE
     Dosage: 5 MG BID
     Route: 065
  4. DIHYDRALAZIN [Concomitant]
     Active Substance: DIHYDRALAZINE SULFATE
     Dosage: 25 MG BID
     Route: 065
  5. RIVAROXABAN [Concomitant]
     Active Substance: RIVAROXABAN
     Dosage: 15 MG QD
     Route: 065
  6. TORASEMIDE [Suspect]
     Active Substance: TORSEMIDE
     Dosage: 10 MG QD
     Route: 065
  7. CANDESARTAN CILEXETIL AND HYDROCHLOROTHIAZIDE [Suspect]
     Active Substance: CANDESARTAN CILEXETIL\HYDROCHLOROTHIAZIDE
     Indication: PRODUCT USED FOR UNKNOWN INDICATION
     Dosage: 16/12.5 MILLIGRAM, TWO TIMES A DAY
     Route: 048
  8. ETORICOXIB. [Suspect]
     Active Substance: ETORICOXIB
     Dosage: 90 MG UNK
     Route: 065

REACTIONS (6)
  - Pyrexia [Unknown]
  - Renal colic [Unknown]
  - Chills [Unknown]
  - Product prescribing error [Unknown]
  - Urinary retention [Unknown]
  - Product monitoring error [Unknown]
